FAERS Safety Report 21326595 (Version 2)
Quarter: 2022Q4

REPORT INFORMATION
  Report Type: Report from Study
  Country: AR (occurrence: AR)
  Receive Date: 20220913
  Receipt Date: 20221027
  Transmission Date: 20230113
  Serious: Yes (Other)
  Sender: FDA-Public Use
  Company Number: AR-NOVARTISPH-NVSC2022AR193619

PATIENT
  Age: 53 Year
  Sex: Female

DRUGS (1)
  1. COSENTYX [Suspect]
     Active Substance: SECUKINUMAB
     Indication: Psoriatic arthropathy
     Dosage: 300 MG, QMO
     Route: 058
     Dates: start: 20220119

REACTIONS (8)
  - Dyspnoea [Recovered/Resolved]
  - Psoriatic arthropathy [Recovering/Resolving]
  - Pain [Not Recovered/Not Resolved]
  - Swelling [Unknown]
  - Arthralgia [Recovering/Resolving]
  - Nail disorder [Recovering/Resolving]
  - Headache [Recovering/Resolving]
  - Product use issue [Recovered/Resolved]

NARRATIVE: CASE EVENT DATE: 20220823
